FAERS Safety Report 21453373 (Version 2)
Quarter: 2022Q4

REPORT INFORMATION
  Report Type: Report from Study
  Country: ES (occurrence: ES)
  Receive Date: 20221013
  Receipt Date: 20221025
  Transmission Date: 20230113
  Serious: Yes (Hospitalization)
  Sender: FDA-Public Use
  Company Number: ES-DSJP-DSU-2022-136461

PATIENT
  Age: 40 Year
  Sex: Female
  Weight: 66 kg

DRUGS (1)
  1. ENHERTU [Suspect]
     Active Substance: FAM-TRASTUZUMAB DERUXTECAN-NXKI
     Indication: HER2 positive breast cancer
     Dosage: 5.4 MG/KG, ONCE EVERY 3 WK (LAST DOSE DATE: 05-JUL-2022)
     Route: 042
     Dates: start: 20210629

REACTIONS (3)
  - Campylobacter infection [Recovered/Resolved]
  - Febrile infection [Unknown]
  - Cholangitis [Unknown]

NARRATIVE: CASE EVENT DATE: 20220802
